FAERS Safety Report 8376567-8 (Version None)
Quarter: 2012Q2

REPORT INFORMATION
  Report Type: 
  Country: None (occurrence: None)
  Receive Date: 20120518
  Receipt Date: 20120409
  Transmission Date: 20120825
  Serious: Yes (Disabling, Other)
  Sender: FDA-Public Use
  Company Number: COL_11619_2012

PATIENT
  Sex: Female

DRUGS (1)
  1. COLGATE MAX FRESH GEL COOL MINT [Suspect]
     Indication: DENTAL CARIES
     Dosage: (BID/ ORAL)
     Route: 048
     Dates: start: 20110901

REACTIONS (11)
  - ANXIETY [None]
  - BLOOD DISORDER [None]
  - SUICIDAL IDEATION [None]
  - CANDIDIASIS [None]
  - IMPAIRED WORK ABILITY [None]
  - ORAL PAIN [None]
  - STOMATITIS [None]
  - ORAL CANDIDIASIS [None]
  - TONGUE COATED [None]
  - WEIGHT DECREASED [None]
  - AGEUSIA [None]
